FAERS Safety Report 8429842-2 (Version None)
Quarter: 2012Q2

REPORT INFORMATION
  Report Type: 
  Country: None (occurrence: None)
  Receive Date: 20120612
  Receipt Date: 20120604
  Transmission Date: 20120825
  Serious: Yes (Hospitalization)
  Sender: FDA-Public Use
  Company Number: US-ABBOTT-12P-163-0942211-00

PATIENT
  Sex: Male
  Weight: 97.61 kg

DRUGS (2)
  1. PREDNISONE TAB [Suspect]
     Indication: CROHN'S DISEASE
     Dosage: 40 MG DAILY
  2. HUMIRA [Suspect]
     Indication: CROHN'S DISEASE
     Dates: start: 20111001

REACTIONS (4)
  - STAPHYLOCOCCAL INFECTION [None]
  - ORAL FUNGAL INFECTION [None]
  - OESOPHAGEAL ULCER [None]
  - CHAPPED LIPS [None]
